FAERS Safety Report 4941864-2 (Version None)
Quarter: 2006Q1

REPORT INFORMATION
  Report Type: 
  Country: None (occurrence: None)
  Receive Date: 20060308
  Receipt Date: 20060228
  Transmission Date: 20060701
  Serious: No
  Sender: FDA-Public Use
  Company Number: J081-002-002195

PATIENT
  Age: 72 Year
  Sex: Female

DRUGS (5)
  1. ARICEPT [Suspect]
     Indication: PSYCHIATRIC SYMPTOM
     Dosage: 3 MG, 1 IN 1 D, ORAL
     Route: 048
     Dates: start: 20060105, end: 20060112
  2. ARICEPT [Suspect]
     Indication: SENILE DEMENTIA
     Dosage: 3 MG, 1 IN 1 D, ORAL
     Route: 048
     Dates: start: 20060105, end: 20060112
  3. RISPERIDONE [Suspect]
     Indication: PSYCHIATRIC SYMPTOM
     Dosage: 6 ML, 1 IN 1 D, ORAL
     Route: 048
     Dates: start: 20051104
  4. RISPERIDONE [Suspect]
     Indication: SENILE DEMENTIA
     Dosage: 6 ML, 1 IN 1 D, ORAL
     Route: 048
     Dates: start: 20051104
  5. LEVOMEPROMAZINE (LEVOMEPROMAZINE) [Concomitant]

REACTIONS (3)
  - DRUG INTERACTION [None]
  - HYPERTENSION [None]
  - TACHYCARDIA [None]
